FAERS Safety Report 8624330-2 (Version None)
Quarter: 2012Q3

REPORT INFORMATION
  Report Type: 
  Country: None (occurrence: None)
  Receive Date: 20120827
  Receipt Date: 20120820
  Transmission Date: 20120928
  Serious: Yes (Hospitalization)
  Sender: FDA-Public Use
  Company Number: US-ACTELION-A-NJ2012-69374

PATIENT
  Age: 62 Year
  Sex: Male

DRUGS (4)
  1. COUMADIN [Concomitant]
  2. FLOLAN [Concomitant]
     Dosage: UNK
     Dates: start: 20060101, end: 20120701
  3. ASPIRIN [Concomitant]
  4. EPOPROSTENOL SODIUM [Suspect]
     Indication: PULMONARY ARTERIAL HYPERTENSION
     Dosage: 22 NG/KG, PER MIN
     Route: 041
     Dates: start: 20120522

REACTIONS (2)
  - CHOLECYSTECTOMY [None]
  - GALLBLADDER DISORDER [None]
